FAERS Safety Report 7269219 (Version 7)
Quarter: 2014Q1

REPORT INFORMATION
  Report Type: Spontaneous
  Country: US (occurrence: US)
  Receive Date: 20100203
  Receipt Date: 20140317
  Transmission Date: 20141002
  Serious: Yes (Hospitalization, Other)
  Sender: FDA-Public Use
  Company Number: US-JNJFOC-20100110989

PATIENT
  Age: 56 Year
  Sex: Female
  Weight: 66.68 kg

DRUGS (41)
  1. DURAGESIC [Suspect]
     Indication: BACK PAIN
     Dosage: NDC NUMBER: 50458-036-05
     Route: 062
     Dates: start: 1996, end: 200911
  2. DURAGESIC [Suspect]
     Indication: BACK PAIN
     Dosage: NDC NUMBER: 50458-094-05
     Route: 062
  3. DURAGESIC [Suspect]
     Indication: BACK PAIN
     Route: 062
     Dates: start: 200909
  4. DURAGESIC [Suspect]
     Indication: PAIN
     Route: 062
     Dates: start: 201108
  5. AMBIEN CR [Concomitant]
     Indication: INSOMNIA
     Route: 065
  6. RESTORIL [Concomitant]
     Indication: SLEEP DISORDER
     Dosage: 1 HOUR OF SLEEP
     Route: 065
  7. TRAZODONE HCL [Concomitant]
     Indication: PRODUCT USED FOR UNKNOWN INDICATION
     Route: 065
  8. WELLBUTRIN XL [Concomitant]
     Indication: PRODUCT USED FOR UNKNOWN INDICATION
     Route: 048
  9. MOBIC [Concomitant]
     Indication: PRODUCT USED FOR UNKNOWN INDICATION
     Dosage: 1 TABLET BY MOUTH BID
     Route: 048
  10. SOMA [Concomitant]
     Indication: PRODUCT USED FOR UNKNOWN INDICATION
     Dosage: BID TO QID
     Route: 048
  11. XANAX [Concomitant]
     Indication: PRODUCT USED FOR UNKNOWN INDICATION
     Dosage: 1 TABLET BY MOUTH TID
     Route: 048
  12. SIMVASTATIN [Concomitant]
     Indication: PRODUCT USED FOR UNKNOWN INDICATION
     Route: 048
  13. TRIPLIX [Concomitant]
     Indication: PRODUCT USED FOR UNKNOWN INDICATION
     Route: 048
  14. ENDOCET [Concomitant]
     Indication: PAIN
     Dosage: 10MG/650MG TABLET, 1 TABLET BY MOUTH Q 6HOURS PRN
     Route: 048
  15. CYMBALTA [Concomitant]
     Indication: PRODUCT USED FOR UNKNOWN INDICATION
     Route: 048
  16. DIOVAN HCT [Concomitant]
     Indication: CARDIAC DISORDER
     Dosage: (60MG) 125 MG
     Route: 065
  17. NASACORT AQ [Concomitant]
     Indication: PRODUCT USED FOR UNKNOWN INDICATION
     Dosage: 1 SPRAY(S) IN EACH NOSTRIL
     Route: 045
  18. PROMETHAZINE HCL [Concomitant]
     Indication: NAUSEA
     Dosage: 1 TABLET Q 4-6 HOURS PRN
     Route: 048
  19. TRICOR [Concomitant]
     Indication: PRODUCT USED FOR UNKNOWN INDICATION
     Route: 065
  20. BACTRIM DS [Concomitant]
     Indication: PRODUCT USED FOR UNKNOWN INDICATION
     Dosage: 160/180 MG
     Route: 065
  21. DOXYCYCLINE [Concomitant]
     Indication: PRODUCT USED FOR UNKNOWN INDICATION
     Route: 065
  22. CLARITIN D [Concomitant]
     Indication: PRODUCT USED FOR UNKNOWN INDICATION
     Route: 048
  23. LIDODERM 5% [Concomitant]
     Indication: MUSCLE SPASMS
     Dosage: 1 QD LEAVE ON 12- 24 HOURS
     Route: 065
  24. LIDODERM 5% [Concomitant]
     Indication: ARTHRITIS
     Dosage: 1 QD LEAVE ON 12- 24 HOURS
     Route: 065
  25. NEXIUM [Concomitant]
     Indication: GASTROOESOPHAGEAL REFLUX DISEASE
     Route: 048
  26. AMBIEN [Concomitant]
     Indication: PRODUCT USED FOR UNKNOWN INDICATION
     Route: 065
  27. KLONOPIN [Concomitant]
     Indication: PRODUCT USED FOR UNKNOWN INDICATION
     Dosage: 1 TABLET(S) BY MOUTH TID
     Route: 048
  28. HCTZ [Concomitant]
     Indication: DIURETIC THERAPY
     Route: 065
  29. FLEXERIL [Concomitant]
     Indication: PRODUCT USED FOR UNKNOWN INDICATION
     Dosage: TID
     Route: 048
  30. SEROQUEL [Concomitant]
     Indication: PRODUCT USED FOR UNKNOWN INDICATION
     Route: 048
  31. LUNESTA [Concomitant]
     Indication: INSOMNIA
     Dosage: QHS
     Route: 048
  32. VALIUM [Concomitant]
     Indication: PRODUCT USED FOR UNKNOWN INDICATION
     Route: 048
  33. PERCOCET [Concomitant]
     Indication: PAIN
     Dosage: 7.5 MG/325MG, 1 TABLET BY MOUTH
     Route: 048
  34. EFFEXOR XR [Concomitant]
     Indication: PRODUCT USED FOR UNKNOWN INDICATION
     Route: 065
  35. NORCO [Concomitant]
     Indication: PRODUCT USED FOR UNKNOWN INDICATION
     Dosage: 7.5MG/325 MG TABLET
     Route: 048
  36. LEXAPRO [Concomitant]
     Indication: PRODUCT USED FOR UNKNOWN INDICATION
     Route: 048
  37. DIAZEPAM [Concomitant]
     Indication: PRODUCT USED FOR UNKNOWN INDICATION
     Route: 048
  38. ROBAXIN [Concomitant]
     Indication: MUSCLE SPASMS
     Dosage: Q 4-6 HOUR PRN
     Route: 048
  39. NEURONTIN [Concomitant]
     Indication: PRODUCT USED FOR UNKNOWN INDICATION
     Route: 048
  40. OXYCONTIN [Concomitant]
     Indication: PRODUCT USED FOR UNKNOWN INDICATION
     Route: 048
  41. ESTRADIOL/NORETHINDRONE ACETATE [Concomitant]
     Indication: PRODUCT USED FOR UNKNOWN INDICATION
     Dosage: 1 MG/0.5 MG
     Route: 065

REACTIONS (11)
  - Intervertebral disc degeneration [Recovered/Resolved]
  - Depression [Not Recovered/Not Resolved]
  - Breakthrough pain [Not Recovered/Not Resolved]
  - Inadequate analgesia [Not Recovered/Not Resolved]
  - Drug administered at inappropriate site [Not Recovered/Not Resolved]
  - Product quality issue [Unknown]
  - Back pain [Unknown]
  - Drug ineffective [Not Recovered/Not Resolved]
  - Pain [Recovered/Resolved]
  - Product quality issue [Not Recovered/Not Resolved]
  - Product packaging quantity issue [Unknown]
